FAERS Safety Report 22872953 (Version 2)
Quarter: 2025Q3

REPORT INFORMATION
  Report Type: Spontaneous
  Country: EU (occurrence: EU)
  Receive Date: 20230828
  Receipt Date: 20250820
  Transmission Date: 20251021
  Serious: Yes (Death)
  Sender: AMGEN
  Company Number: EU-AMGEN-FRASP2023148724

PATIENT

DRUGS (2)
  1. BEVACIZUMAB [Suspect]
     Active Substance: BEVACIZUMAB
     Indication: Hepatocellular carcinoma
     Route: 065
  2. ATEZOLIZUMAB [Concomitant]
     Active Substance: ATEZOLIZUMAB
     Indication: Hepatocellular carcinoma
     Route: 065

REACTIONS (19)
  - Death [Fatal]
  - Hepatocellular carcinoma [Fatal]
  - Quality of life decreased [Unknown]
  - Body dysmorphic disorder [Unknown]
  - Jaundice [Unknown]
  - Malnutrition [Unknown]
  - Abdominal distension [Unknown]
  - Libido disorder [Unknown]
  - Off label use [Unknown]
  - Insomnia [Unknown]
  - Pyrexia [Unknown]
  - Fatigue [Unknown]
  - Nausea [Unknown]
  - Vomiting [Unknown]
  - Pain [Unknown]
  - Dyspnoea [Unknown]
  - Decreased appetite [Unknown]
  - Constipation [Unknown]
  - Diarrhoea [Unknown]
